FAERS Safety Report 18683124 (Version 1)
Quarter: 2020Q4

REPORT INFORMATION
  Report Type: Spontaneous
  Country: US (occurrence: US)
  Receive Date: 20201230
  Receipt Date: 20201230
  Transmission Date: 20210114
  Serious: Yes (Death, Other)
  Sender: FDA-Public Use
  Company Number: US-BAYER-2020-282900

PATIENT
  Sex: Male

DRUGS (1)
  1. AFRIN ORIGINAL [Suspect]
     Active Substance: OXYMETAZOLINE HYDROCHLORIDE
     Dosage: UNK
     Route: 065

REACTIONS (5)
  - Brain neoplasm [None]
  - Death [Fatal]
  - Vasoconstriction [Unknown]
  - Dyspnoea [Unknown]
  - Incorrect product administration duration [Unknown]
